FAERS Safety Report 5490791-3 (Version None)
Quarter: 2007Q4

REPORT INFORMATION
  Report Type: 
  Country: None (occurrence: None)
  Receive Date: 20071019
  Receipt Date: 20071008
  Transmission Date: 20080405
  Serious: Yes (Death, Other)
  Sender: FDA-Public Use
  Company Number: US-JNJFOC-20071004685

PATIENT
  Age: 10 Year
  Sex: Female
  Weight: 49.9 kg

DRUGS (5)
  1. TYLENOL (CAPLET) [Suspect]
  2. TYLENOL (CAPLET) [Suspect]
     Indication: PHARYNGITIS
     Dosage: 650 MG EVERY 4-6 HOURS, AS NECESSARY
  3. PSEUDOEPHEDRINE HCL [Suspect]
     Indication: PHARYNGITIS
     Route: 048
  4. GUAIFENESIN [Suspect]
     Indication: PHARYNGITIS
     Dosage: UNKNOWN
     Route: 048
  5. AMOXICILLIN [Suspect]
     Indication: PHARYNGITIS
     Route: 048

REACTIONS (3)
  - CONVULSION [None]
  - PNEUMONIA [None]
  - RENAL FAILURE [None]
